FAERS Safety Report 8795919 (Version 3)
Quarter: 2014Q2

REPORT INFORMATION
  Report Type: Report from Study
  Country: US (occurrence: US)
  Receive Date: 20120919
  Receipt Date: 20140214
  Transmission Date: 20141212
  Serious: Yes (Hospitalization, Other)
  Sender: FDA-Public Use
  Company Number: US-ALEXION-A201201716

PATIENT
  Age: 81 Year
  Sex: Male

DRUGS (4)
  1. SOLIRIS [Suspect]
     Indication: HAEMOLYTIC URAEMIC SYNDROME
     Dosage: 900 MG, UNK
     Route: 042
     Dates: start: 20120406, end: 20120427
  2. SOLIRIS [Suspect]
     Dosage: 1200 MG, Q2W
     Route: 042
     Dates: start: 20120427, end: 20120703
  3. SOLIRIS [Suspect]
     Dosage: 1200 MG Q10D
     Route: 042
     Dates: start: 20120703
  4. BENADRYL                           /00000402/ [Concomitant]

REACTIONS (13)
  - Device related infection [Unknown]
  - Peritoneal dialysis [Unknown]
  - Pneumonia [Unknown]
  - Sepsis [Unknown]
  - Renal impairment [Unknown]
  - Pulmonary function test abnormal [Unknown]
  - Cardiac disorder [Unknown]
  - Body temperature increased [Unknown]
  - Moaning [Unknown]
  - Burning sensation [Unknown]
  - Tremor [Unknown]
  - Chills [Unknown]
  - Tremor [Unknown]
